FAERS Safety Report 4806799-4 (Version None)
Quarter: 2005Q4

REPORT INFORMATION
  Report Type: 
  Country: None (occurrence: None)
  Receive Date: 20051019
  Receipt Date: 20051006
  Transmission Date: 20060501
  Serious: Yes (Disabling)
  Sender: FDA-Public Use
  Company Number: 2005140216

PATIENT
  Sex: Male

DRUGS (3)
  1. XALATAN [Suspect]
     Indication: GLAUCOMA
     Dosage: SINGLE INTERVAL: EVERYDAY), OPHTHALMIC
     Route: 047
     Dates: start: 19991008
  2. AMINOPHYLLIN [Concomitant]
  3. CLORANA (HYDROCHLOROTHIAZIDE) [Concomitant]

REACTIONS (3)
  - BLINDNESS UNILATERAL [None]
  - CONDITION AGGRAVATED [None]
  - GLAUCOMA [None]
